FAERS Safety Report 6058152-6 (Version None)
Quarter: 2009Q1

REPORT INFORMATION
  Report Type: 
  Country: None (occurrence: None)
  Receive Date: 20090127
  Receipt Date: 20081212
  Transmission Date: 20090719
  Serious: Yes (Other)
  Sender: FDA-Public Use
  Company Number: 2008-04749

PATIENT
  Age: 72 Year
  Sex: Male
  Weight: 67 kg

DRUGS (3)
  1. VELCADE [Suspect]
     Indication: MULTIPLE MYELOMA
     Dosage: 1 MG, INTRAVENOUS
     Route: 042
     Dates: start: 20081209, end: 20081219
  2. DEXAMETHASONE TAB [Suspect]
     Indication: MULTIPLE MYELOMA
     Dosage: 40 MG, ORAL
     Route: 048
     Dates: start: 20081209, end: 20081212
  3. ALKERAN [Suspect]
     Indication: MULTIPLE MYELOMA
     Dosage: 8 MG, ORAL
     Route: 048
     Dates: start: 20081209, end: 20081212

REACTIONS (2)
  - CATARACT [None]
  - CONDITION AGGRAVATED [None]
